FAERS Safety Report 7884293-4 (Version None)
Quarter: 2011Q4

REPORT INFORMATION
  Report Type: 
  Country: None (occurrence: None)
  Receive Date: 20111102
  Receipt Date: 20111026
  Transmission Date: 20120403
  Serious: Yes (Life-Threatening, Hospitalization, Other)
  Sender: FDA-Public Use
  Company Number: DE-BRISTOL-MYERS SQUIBB COMPANY-16197402

PATIENT
  Age: 68 Year
  Sex: Female
  Weight: 100 kg

DRUGS (6)
  1. ETOPOSIDE [Suspect]
     Indication: ACUTE MYELOID LEUKAEMIA
     Dosage: 1DF=205 UNITS NOS INTERRUPTED ON 16SEP2011
     Dates: start: 20110914
  2. CYTARABINE [Suspect]
     Indication: ACUTE MYELOID LEUKAEMIA
     Dosage: INTERRUPTED ON 18SEP2011
     Dates: start: 20110914
  3. GEMTUZUMAB OZOGAMICIN [Suspect]
     Indication: ACUTE MYELOID LEUKAEMIA
     Dosage: INTERRUPTED ON 14SEP2011
     Dates: start: 20110904
  4. IDARUBICIN HCL [Suspect]
     Indication: ACUTE MYELOID LEUKAEMIA
     Dosage: 1DF=24.60 UNITS NOS INTERRUPTED ON 16SEP2011
     Dates: start: 20110914
  5. TRETINOIN [Suspect]
     Indication: ACUTE MYELOID LEUKAEMIA
     Dosage: 19SEP-21SEP11,90MG 22SEP-01OCT11,30MG
     Dates: start: 20110919
  6. PEGFILGRASTIM [Suspect]
     Indication: ACUTE MYELOID LEUKAEMIA
     Dosage: INTERRUPTED ON 02OCT2011
     Dates: start: 20111002

REACTIONS (2)
  - RENAL FAILURE [None]
  - VENOOCCLUSIVE LIVER DISEASE [None]
